FAERS Safety Report 5587450-5 (Version None)
Quarter: 2008Q1

REPORT INFORMATION
  Report Type: 
  Country: None (occurrence: None)
  Receive Date: 20080110
  Receipt Date: 20071217
  Transmission Date: 20080703
  Serious: No
  Sender: FDA-Public Use
  Company Number: US-BOEHRINGER INGELHEIM PHARMACEUTICALS, INC.-2007-BP-26351BP

PATIENT
  Age: 84 Year
  Sex: Female

DRUGS (4)
  1. SPIRIVA [Suspect]
     Indication: EMPHYSEMA
     Route: 055
     Dates: start: 20070401
  2. ACCUPRIL [Concomitant]
     Indication: HYPERTENSION
  3. DIURETIC [Concomitant]
  4. XANAX [Concomitant]
     Indication: MOOD ALTERED

REACTIONS (1)
  - DRY MOUTH [None]
